FAERS Safety Report 24617924 (Version 1)
Quarter: 2024Q4

REPORT INFORMATION
  Report Type: Spontaneous
  Country: US (occurrence: US)
  Receive Date: 20241114
  Receipt Date: 20241114
  Transmission Date: 20250115
  Serious: Yes (Other)
  Sender: ALEXION PHARMACEUTICALS
  Company Number: US-ASTRAZENECA-202410USA012572US

PATIENT

DRUGS (13)
  1. CRESTOR [Interacting]
     Active Substance: ROSUVASTATIN CALCIUM
     Dosage: 10 MILLIGRAM, QD
  2. CRESTOR [Interacting]
     Active Substance: ROSUVASTATIN CALCIUM
     Dosage: 10 MILLIGRAM, QD
  3. CRESTOR [Interacting]
     Active Substance: ROSUVASTATIN CALCIUM
     Dosage: 10 MILLIGRAM, QD
  4. CRESTOR [Interacting]
     Active Substance: ROSUVASTATIN CALCIUM
     Dosage: 10 MILLIGRAM, QD
  5. METOPROLOL [Suspect]
     Active Substance: METOPROLOL
     Dosage: UNKNOWN
  6. METOPROLOL [Suspect]
     Active Substance: METOPROLOL
     Dosage: UNKNOWN
  7. METOPROLOL [Suspect]
     Active Substance: METOPROLOL
     Dosage: UNKNOWN
  8. METOPROLOL [Suspect]
     Active Substance: METOPROLOL
     Dosage: UNKNOWN
  9. VYNDAMAX [Interacting]
     Active Substance: TAFAMIDIS
     Indication: Product used for unknown indication
     Dosage: UNK, QD
  10. VYNDAMAX [Interacting]
     Active Substance: TAFAMIDIS
     Dosage: UNK, QD
  11. VYNDAMAX [Interacting]
     Active Substance: TAFAMIDIS
     Dosage: UNK, QD
  12. VYNDAMAX [Interacting]
     Active Substance: TAFAMIDIS
     Dosage: UNK, QD
  13. TAMSULOSIN [Concomitant]
     Active Substance: TAMSULOSIN

REACTIONS (6)
  - Neuropathy peripheral [Unknown]
  - Drug interaction [Unknown]
  - Drug ineffective [Unknown]
  - Muscular weakness [Unknown]
  - Tremor [Unknown]
  - Adverse event [Unknown]
